FAERS Safety Report 8008112-0 (Version None)
Quarter: 2011Q4

REPORT INFORMATION
  Report Type: 
  Country: None (occurrence: None)
  Receive Date: 20111227
  Receipt Date: 20111222
  Transmission Date: 20120403
  Serious: Yes (Other)
  Sender: FDA-Public Use
  Company Number: PHEH2011US012373

PATIENT
  Sex: Female

DRUGS (1)
  1. AREDIA [Suspect]

REACTIONS (5)
  - ARTHRALGIA [None]
  - HIP FRACTURE [None]
  - HERPES ZOSTER [None]
  - OEDEMA PERIPHERAL [None]
  - NEUTROPENIA [None]
